FAERS Safety Report 9287970 (Version 1)
Quarter: 2013Q2

REPORT INFORMATION
  Report Type: Spontaneous
  Country: US (occurrence: US)
  Receive Date: 20130514
  Receipt Date: 20130514
  Transmission Date: 20140414
  Serious: Yes (Other)
  Sender: FDA-Public Use
  Company Number: US-BRISTOL-MYERS SQUIBB COMPANY-18862623

PATIENT
  Age: 59 Year
  Sex: Male
  Weight: 108.84 kg

DRUGS (3)
  1. BYDUREON [Suspect]
     Indication: TYPE 2 DIABETES MELLITUS
     Dosage: NO OF INJ:3
  2. PIOGLITAZONE HCL [Concomitant]
  3. METFORMIN [Concomitant]

REACTIONS (8)
  - Dyspnoea [Unknown]
  - Nausea [Unknown]
  - Abdominal discomfort [Unknown]
  - Dysphagia [Unknown]
  - Headache [Unknown]
  - Dry mouth [Unknown]
  - Injection site swelling [Unknown]
  - Injection site pruritus [Unknown]
